FAERS Safety Report 5955221-3 (Version None)
Quarter: 2008Q4

REPORT INFORMATION
  Report Type: 
  Country: None (occurrence: None)
  Receive Date: 20081117
  Receipt Date: 20081103
  Transmission Date: 20090506
  Serious: Yes (Hospitalization, Other)
  Sender: FDA-Public Use
  Company Number: ES-ROCHE-594941

PATIENT
  Age: 66 Year
  Sex: Male

DRUGS (5)
  1. VALGANCICLOVIR [Suspect]
     Route: 048
     Dates: end: 20061001
  2. VALGANCICLOVIR [Suspect]
     Route: 048
  3. VALGANCICLOVIR [Suspect]
     Route: 048
  4. GANCICLOVIR [Suspect]
     Route: 042
  5. GANCICLOVIR [Suspect]
     Route: 042

REACTIONS (5)
  - BILIARY ANASTOMOSIS COMPLICATION [None]
  - CYTOMEGALOVIRUS GASTROINTESTINAL INFECTION [None]
  - ILEUS PARALYTIC [None]
  - INTESTINAL MASS [None]
  - NEUTROPENIA [None]
